FAERS Safety Report 4964254-5 (Version None)
Quarter: 2006Q1

REPORT INFORMATION
  Report Type: 
  Country: None (occurrence: None)
  Receive Date: 20060331
  Receipt Date: 20060313
  Transmission Date: 20060701
  Serious: Yes (Hospitalization)
  Sender: FDA-Public Use
  Company Number: M-06-0209

PATIENT
  Age: 84 Year
  Sex: Female

DRUGS (5)
  1. AMIODARONE HCL [Suspect]
     Indication: VENTRICULAR ARRHYTHMIA
     Dosage: 200 MG, QD, PO
     Route: 048
     Dates: start: 20060201, end: 20060201
  2. AMIODARONE HCL [Suspect]
     Indication: VENTRICULAR ARRHYTHMIA
     Dosage: 300 MG, QD, PO
     Route: 048
     Dates: start: 20060101, end: 20060201
  3. SYNTHROID [Concomitant]
  4. COREG [Concomitant]
  5. ASPIRIN [Concomitant]

REACTIONS (10)
  - AGEUSIA [None]
  - BALANCE DISORDER [None]
  - DEHYDRATION [None]
  - DYSGEUSIA [None]
  - EYE INJURY [None]
  - FALL [None]
  - NAUSEA [None]
  - ORAL INTAKE REDUCED [None]
  - PRODUCTIVE COUGH [None]
  - TREMOR [None]
